FAERS Safety Report 6684930-6 (Version None)
Quarter: 2010Q2

REPORT INFORMATION
  Report Type: 
  Country: None (occurrence: None)
  Receive Date: 20100416
  Receipt Date: 20100412
  Transmission Date: 20101027
  Serious: Yes (Hospitalization)
  Sender: FDA-Public Use
  Company Number: BE-ELI_LILLY_AND_COMPANY-BE201003006634

PATIENT
  Sex: Male
  Weight: 57.5 kg

DRUGS (9)
  1. PEMETREXED [Suspect]
     Indication: NON-SMALL CELL LUNG CANCER
     Dosage: 500 MG/M2, ON DAY 1 EVERY 21 DAYS
     Route: 042
     Dates: start: 20090817
  2. CISPLATIN [Suspect]
     Indication: NON-SMALL CELL LUNG CANCER
     Dosage: 75 MG/M2, ON DAY 1 EVERY 21 DAYS
     Route: 042
     Dates: start: 20090817
  3. FOLIC ACID [Concomitant]
     Indication: PROPHYLAXIS
     Dosage: UNK, UNKNOWN
     Dates: start: 20090812
  4. VITAMIN B-12 [Concomitant]
     Indication: PROPHYLAXIS
     Dosage: UNK, UNKNOWN
     Dates: start: 20090812
  5. METHYLPREDNISOLONE [Concomitant]
     Indication: PROPHYLAXIS
     Dates: start: 20090812
  6. TICLID [Concomitant]
     Indication: PERIPHERAL VASCULAR DISORDER
     Dosage: UNK, UNKNOWN
     Dates: start: 20001020
  7. DOCRANITI [Concomitant]
     Indication: GASTRIC DISORDER
  8. LORAMET [Concomitant]
     Indication: SLEEP DISORDER
     Dosage: UNK, UNKNOWN
  9. ALDACTAZINE [Concomitant]
     Indication: HYPERTENSION
     Dosage: UNK, UNKNOWN

REACTIONS (1)
  - LOCAL SWELLING [None]
